FAERS Safety Report 9574322 (Version 2)
Quarter: 2014Q3

REPORT INFORMATION
  Report Type: Spontaneous
  Country: US (occurrence: US)
  Receive Date: 20131001
  Receipt Date: 20140710
  Transmission Date: 20150326
  Serious: No
  Sender: FDA-Public Use
  Company Number: US-PURDUE-USA-2012-0084651

PATIENT
  Sex: Female
  Weight: 49.89 kg

DRUGS (2)
  1. BUTRANS [Suspect]
     Active Substance: BUPRENORPHINE
     Indication: PAIN
     Dosage: 20 MCG/HR, UNK
     Route: 062
  2. BUTRANS [Suspect]
     Active Substance: BUPRENORPHINE
     Indication: BACK PAIN

REACTIONS (5)
  - Wrong technique in drug usage process [Unknown]
  - Application site urticaria [Recovered/Resolved]
  - Dermatitis contact [Not Recovered/Not Resolved]
  - Application site pruritus [Not Recovered/Not Resolved]
  - Application site rash [Not Recovered/Not Resolved]
